FAERS Safety Report 4475517-4 (Version None)
Quarter: 2004Q4

REPORT INFORMATION
  Report Type: 
  Country: None (occurrence: None)
  Receive Date: 20041015
  Receipt Date: 20040920
  Transmission Date: 20050328
  Serious: Yes (Hospitalization)
  Sender: FDA-Public Use
  Company Number: FR-BRISTOL-MYERS SQUIBB COMPANY-12706685

PATIENT
  Age: 77 Year
  Sex: Male
  Weight: 104 kg

DRUGS (19)
  1. BRISTOPEN INJ 1 G [Suspect]
     Indication: ENDOCARDITIS STAPHYLOCOCCAL
     Dates: start: 20040729, end: 20040823
  2. SOTALEX TABS 160 MG [Suspect]
     Route: 048
     Dates: start: 19960615
  3. ATARAX [Suspect]
     Route: 048
     Dates: start: 20040811
  4. RIFADIN [Suspect]
     Indication: ENDOCARDITIS STAPHYLOCOCCAL
     Dosage: CHANGED TO ORAL 600 MG TWICE DAILY ON 24-AUG-2004
     Route: 042
     Dates: start: 20040728, end: 20040824
  5. VANCOMYCIN [Suspect]
     Indication: ENDOCARDITIS STAPHYLOCOCCAL
     Route: 042
     Dates: start: 20040728, end: 20040729
  6. AMLOR [Suspect]
     Route: 048
     Dates: start: 20040515
  7. TAHOR [Concomitant]
     Dosage: 1 IN THE EVENING
  8. VICTAN [Concomitant]
     Dosage: 1/2 IN THE EVENING
  9. COVERSYL [Concomitant]
     Dosage: 2 X 4 MG IN THE EVENING
  10. LASILIX [Concomitant]
     Dosage: 1 IN THE MORNING
  11. DIFFU-K [Concomitant]
     Dates: start: 20040802
  12. STILNOX [Concomitant]
     Dates: start: 20040805
  13. IMOVANE [Concomitant]
     Dosage: 1/D
     Dates: start: 20040806
  14. SOTALEX [Concomitant]
     Dosage: 1 IN THE MORNING AND 1/2 IN THE EVENING
  15. PREVISCAN [Concomitant]
     Dosage: 3/4/D
     Dates: end: 20040720
  16. DAFLON [Concomitant]
     Dosage: 1 IN THE MORNING AND 1 IN THE EVENING
     Dates: end: 20040727
  17. TRIMEBUTINE [Concomitant]
     Dates: end: 20040727
  18. MOVICOL [Concomitant]
  19. SPAGULAX [Concomitant]

REACTIONS (4)
  - HAEMANGIOMA [None]
  - PURPURA [None]
  - RASH MORBILLIFORM [None]
  - TOXIC SKIN ERUPTION [None]
